FAERS Safety Report 7569254-7 (Version None)
Quarter: 2011Q2

REPORT INFORMATION
  Report Type: 
  Country: None (occurrence: None)
  Receive Date: 20110623
  Receipt Date: 20110620
  Transmission Date: 20111010
  Serious: Yes (Death)
  Sender: FDA-Public Use
  Company Number: PHHY2011US52977

PATIENT
  Sex: Male

DRUGS (1)
  1. EXJADE [Suspect]
     Indication: MYELOID LEUKAEMIA
     Dosage: 500 MG, TID
     Route: 048
     Dates: start: 20100427

REACTIONS (1)
  - DEATH [None]
